FAERS Safety Report 5922678-3 (Version None)
Quarter: 2008Q4

REPORT INFORMATION
  Report Type: 
  Country: None (occurrence: None)
  Receive Date: 20081017
  Receipt Date: 20081015
  Transmission Date: 20090506
  Serious: Yes (Disabling, Other)
  Sender: FDA-Public Use
  Company Number: US-ASTRAZENECA-2008UW11353

PATIENT
  Age: 23416 Day
  Sex: Female
  Weight: 86.2 kg

DRUGS (5)
  1. ARIMIDEX [Suspect]
     Route: 048
     Dates: end: 20080601
  2. SYNTHROID [Concomitant]
  3. PRILOSEC [Concomitant]
  4. COZAAR [Concomitant]
  5. LIPITOR [Concomitant]

REACTIONS (8)
  - ARTHRALGIA [None]
  - BONE PAIN [None]
  - DIARRHOEA [None]
  - DISABILITY [None]
  - ILL-DEFINED DISORDER [None]
  - NAUSEA [None]
  - OROPHARYNGEAL PAIN [None]
  - PAIN IN EXTREMITY [None]
